FAERS Safety Report 5669513-9 (Version None)
Quarter: 2008Q1

REPORT INFORMATION
  Report Type: 
  Country: None (occurrence: None)
  Receive Date: 20080317
  Receipt Date: 20080313
  Transmission Date: 20080703
  Serious: Yes (Death)
  Sender: FDA-Public Use
  Company Number: CH-ASTRAZENECA-2008PK00536

PATIENT
  Age: 47 Year
  Sex: Male

DRUGS (4)
  1. SEROQUEL [Suspect]
     Indication: RESTLESSNESS
     Dosage: LONG TERM
     Route: 048
  2. SEROQUEL [Suspect]
     Indication: AGITATION
     Dosage: LONG TERM
     Route: 048
  3. CITALOPRAM HYDROBROMIDE [Suspect]
     Dosage: LONG TERM
     Route: 048
  4. DEPAKENE [Concomitant]
     Indication: EPILEPSY
     Dosage: LONG TERM
     Route: 048

REACTIONS (1)
  - SUDDEN DEATH [None]
